FAERS Safety Report 13543932 (Version 1)
Quarter: 2017Q2

REPORT INFORMATION
  Report Type: Spontaneous
  Country: US (occurrence: US)
  Receive Date: 20170515
  Receipt Date: 20170515
  Transmission Date: 20170830
  Serious: No
  Sender: FDA-Public Use
  Company Number: US-TEVA-678788USA

PATIENT
  Sex: Female

DRUGS (1)
  1. CEFALEXIN [Suspect]
     Active Substance: CEPHALEXIN
     Indication: GINGIVITIS
     Dates: start: 201607

REACTIONS (3)
  - Drug ineffective [Unknown]
  - Toothache [Unknown]
  - Constipation [Unknown]

NARRATIVE: CASE EVENT DATE: 201607
